FAERS Safety Report 16719589 (Version 1)
Quarter: 2019Q3

REPORT INFORMATION
  Report Type: Report from Study
  Country: None (occurrence: US)
  Receive Date: 20190820
  Receipt Date: 20190820
  Transmission Date: 20191005
  Serious: Yes (Other)
  Sender: FDA-Public Use
  Company Number: US-ABBVIE-19K-163-2883585-00

PATIENT
  Age: 68 Year
  Sex: Female
  Weight: 59.47 kg

DRUGS (5)
  1. HUMIRA [Suspect]
     Active Substance: ADALIMUMAB
     Route: 058
     Dates: start: 2019
  2. CELEBREX [Concomitant]
     Active Substance: CELECOXIB
     Indication: ARTHRITIS
  3. HUMIRA [Suspect]
     Active Substance: ADALIMUMAB
     Indication: RHEUMATOID ARTHRITIS
     Route: 058
     Dates: start: 20160827, end: 2019
  4. PREDNISONE. [Concomitant]
     Active Substance: PREDNISONE
     Indication: ARTHRITIS
  5. IMURAN [Concomitant]
     Active Substance: AZATHIOPRINE
     Indication: ARTHRITIS

REACTIONS (3)
  - Female genital operation [Recovered/Resolved]
  - Vaginal prolapse [Recovered/Resolved]
  - Urinary bladder suspension [Recovered/Resolved]

NARRATIVE: CASE EVENT DATE: 201802
